FAERS Safety Report 25315885 (Version 1)
Quarter: 2025Q2

REPORT INFORMATION
  Report Type: Spontaneous
  Country: US (occurrence: US)
  Receive Date: 20250515
  Receipt Date: 20250515
  Transmission Date: 20250717
  Serious: No
  Sender: AUROBINDO
  Company Number: US-AUROBINDO-AUR-APL-2025-015234

PATIENT
  Age: 23 Year
  Sex: Male
  Weight: 61.2 kg

DRUGS (2)
  1. TESTOSTERONE CYPIONATE [Suspect]
     Active Substance: TESTOSTERONE CYPIONATE
     Indication: Hormone replacement therapy
     Route: 065
  2. ESCITALOPRAM [Concomitant]
     Active Substance: ESCITALOPRAM OXALATE
     Indication: Product used for unknown indication
     Route: 065

REACTIONS (6)
  - Mood altered [Unknown]
  - Depressed mood [Unknown]
  - Fatigue [Unknown]
  - Product dose omission issue [Unknown]
  - Product use complaint [Unknown]
  - Liquid product physical issue [Unknown]
